FAERS Safety Report 7110942-4 (Version None)
Quarter: 2010Q4

REPORT INFORMATION
  Report Type: 
  Country: None (occurrence: None)
  Receive Date: 20101118
  Receipt Date: 20101110
  Transmission Date: 20110411
  Serious: Yes (Hospitalization)
  Sender: FDA-Public Use
  Company Number: US-ABBOTT-10P-163-0684709-00

PATIENT
  Sex: Female
  Weight: 65.83 kg

DRUGS (2)
  1. ZEMPLAR [Suspect]
     Indication: NEPHROPATHY
     Dates: start: 20080101, end: 20100904
  2. ZEMPLAR [Suspect]
     Dates: start: 20100912

REACTIONS (1)
  - RESPIRATORY DISORDER [None]
